FAERS Safety Report 6747384-7 (Version None)
Quarter: 2010Q2

REPORT INFORMATION
  Report Type: 
  Country: None (occurrence: None)
  Receive Date: 20100528
  Receipt Date: 20100521
  Transmission Date: 20101027
  Serious: Yes (Hospitalization)
  Sender: FDA-Public Use
  Company Number: B0657193A

PATIENT
  Sex: Male

DRUGS (5)
  1. GLAZIDIM [Suspect]
     Indication: DRUG USE FOR UNKNOWN INDICATION
     Dosage: 2G PER DAY
     Route: 042
     Dates: start: 20100423, end: 20100423
  2. LEUSTATIN [Suspect]
     Dosage: 13MG PER DAY
     Route: 042
     Dates: start: 20100419, end: 20100422
  3. BACTRIM [Concomitant]
     Dosage: 1920MG PER DAY
     Route: 048
     Dates: start: 20100423, end: 20100423
  4. ZOVIRAX [Concomitant]
     Dosage: 1200MG PER DAY
     Route: 048
  5. OLMESARTAN MEDOXOMIL [Concomitant]
     Dosage: 20MG PER DAY
     Route: 048

REACTIONS (7)
  - CHEST X-RAY ABNORMAL [None]
  - CHILLS [None]
  - ERYTHEMA [None]
  - PLEURAL EFFUSION [None]
  - PURPURA [None]
  - PYREXIA [None]
  - TOXIC SKIN ERUPTION [None]
